FAERS Safety Report 7172002-6 (Version None)
Quarter: 2010Q4

REPORT INFORMATION
  Report Type: 
  Country: None (occurrence: None)
  Receive Date: 20101217
  Receipt Date: 20100130
  Transmission Date: 20110411
  Serious: No
  Sender: FDA-Public Use
  Company Number: US-AMGEN-KDL389890

PATIENT

DRUGS (1)
  1. ENBREL [Suspect]
     Indication: ANKYLOSING SPONDYLITIS
     Dosage: 50 MG, QWK
     Route: 058
     Dates: start: 20100129

REACTIONS (8)
  - EYE PAIN [None]
  - FATIGUE [None]
  - FEELING COLD [None]
  - HEADACHE [None]
  - OEDEMA PERIPHERAL [None]
  - PAINFUL RESPIRATION [None]
  - PALLOR [None]
  - SWELLING FACE [None]
